FAERS Safety Report 23165000 (Version 1)
Quarter: 2023Q4

REPORT INFORMATION
  Report Type: Spontaneous
  Country: US (occurrence: None)
  Receive Date: 20231108
  Receipt Date: 20231108
  Transmission Date: 20240109
  Serious: No
  Sender: FDA-Public Use
  Company Number: None

PATIENT
  Age: 70 Year
  Sex: Male
  Weight: 90.3 kg

DRUGS (15)
  1. EPZICOM [Suspect]
     Active Substance: ABACAVIR SULFATE\LAMIVUDINE
     Indication: HIV infection
     Dosage: FREQUENCY : DAILY;?
     Route: 048
  2. Cholecalciferol 2000 Units QD [Concomitant]
  3. Gabapentin 100-200mg QHS [Concomitant]
  4. Sennosides-Docusate 8.6-50mg BID PRN [Concomitant]
  5. Prezista 800mg QD [Concomitant]
  6. Pravastatin 80mg QD [Concomitant]
  7. Tivicay 50mg QD [Concomitant]
  8. Zestril 40mg QD [Concomitant]
  9. Famotidine 20mg QD [Concomitant]
  10. Felodipine 2.5mg ER QD [Concomitant]
  11. Ritonavir 100mg QD [Concomitant]
  12. METFORMIN [Concomitant]
     Active Substance: METFORMIN HYDROCHLORIDE
  13. Lantus 30 Units QD [Concomitant]
  14. Symbicort 80-4.5mcg 2 Puffs BID [Concomitant]
  15. Albuterol HFA PRN [Concomitant]

REACTIONS (4)
  - Throat irritation [None]
  - Product taste abnormal [None]
  - Abdominal discomfort [None]
  - Hypophagia [None]

NARRATIVE: CASE EVENT DATE: 20231107
